FAERS Safety Report 4302120-9 (Version None)
Quarter: 2004Q1

REPORT INFORMATION
  Report Type: 
  Country: None (occurrence: None)
  Receive Date: 20040220
  Receipt Date: 20040212
  Transmission Date: 20041129
  Serious: Yes (Other)
  Sender: FDA-Public Use
  Company Number: 2004196256US

PATIENT
  Sex: Male

DRUGS (2)
  1. XANAX [Suspect]
     Dosage: 0.5 MG, QID ( 1 BID AND 2HS), ORAL
     Route: 048
  2. CELEXA [Suspect]

REACTIONS (11)
  - CRYING [None]
  - DIFFICULTY IN WALKING [None]
  - DYSURIA [None]
  - EYE HAEMORRHAGE [None]
  - HEPATIC FAILURE [None]
  - HYPERHIDROSIS [None]
  - HYPOAESTHESIA [None]
  - OEDEMA PERIPHERAL [None]
  - PALPITATIONS [None]
  - RASH [None]
  - TREMOR [None]
